FAERS Safety Report 4911199-2 (Version None)
Quarter: 2006Q1

REPORT INFORMATION
  Report Type: 
  Country: None (occurrence: None)
  Receive Date: 20060209
  Receipt Date: 20060130
  Transmission Date: 20060701
  Serious: Yes (Hospitalization)
  Sender: FDA-Public Use
  Company Number: TCI2005A01628

PATIENT
  Age: 77 Year
  Sex: Female

DRUGS (3)
  1. ACTOS [Suspect]
     Indication: DIABETES MELLITUS NON-INSULIN-DEPENDENT
     Dosage: 15 MG (15 MG 1 D) PER ORAL
     Route: 048
     Dates: start: 20030610, end: 20031117
  2. BASEN TABLETS 0.2 (VOGLIBOSE) [Concomitant]
  3. GLYBURIDE [Concomitant]

REACTIONS (8)
  - BRAIN NATRIURETIC PEPTIDE INCREASED [None]
  - DRUG PRESCRIBING ERROR [None]
  - INCORRECT DOSE ADMINISTERED [None]
  - INFECTION [None]
  - PLEURAL EFFUSION [None]
  - PRODUCTIVE COUGH [None]
  - PYREXIA [None]
  - WEIGHT INCREASED [None]
